FAERS Safety Report 19672677 (Version 1)
Quarter: 2021Q3

REPORT INFORMATION
  Report Type: Report from Study
  Country: None (occurrence: US)
  Receive Date: 20210808
  Receipt Date: 20210808
  Transmission Date: 20211014
  Serious: Yes (Other)
  Sender: FDA-Public Use
  Company Number: US-ABBVIE-21K-163-4023937-00

PATIENT
  Age: 43 Year
  Sex: Female
  Weight: 74.91 kg

DRUGS (1)
  1. HUMIRA [Suspect]
     Active Substance: ADALIMUMAB
     Indication: COLITIS ULCERATIVE
     Dosage: CITRATE FREE, INJECTED TWO PENS, ONE ON EACH LEG
     Route: 058
     Dates: start: 20210629, end: 20210629

REACTIONS (5)
  - Triple negative breast cancer [Not Recovered/Not Resolved]
  - Breast pain [Not Recovered/Not Resolved]
  - Decreased appetite [Not Recovered/Not Resolved]
  - Weight decreased [Not Recovered/Not Resolved]
  - Tumour flare [Unknown]

NARRATIVE: CASE EVENT DATE: 2021
